FAERS Safety Report 11222157 (Version 2)
Quarter: 2015Q3

REPORT INFORMATION
  Report Type: Report from Study
  Country: BR (occurrence: BR)
  Receive Date: 20150626
  Receipt Date: 20150708
  Transmission Date: 20151125
  Serious: Yes (Death)
  Sender: FDA-Public Use
  Company Number: PHHY2015BR039744

PATIENT
  Sex: Female
  Weight: 70 kg

DRUGS (1)
  1. EXELON PATCH [Suspect]
     Active Substance: RIVASTIGMINE
     Indication: DEMENTIA ALZHEIMER^S TYPE
     Dosage: HALF PATCH, QD
     Route: 065
     Dates: start: 20150323

REACTIONS (3)
  - Wrong technique in product usage process [Unknown]
  - Drug prescribing error [Unknown]
  - Death [Fatal]
